FAERS Safety Report 18337564 (Version 1)
Quarter: 2020Q4

REPORT INFORMATION
  Report Type: Spontaneous
  Country: US (occurrence: US)
  Receive Date: 20201002
  Receipt Date: 20201002
  Transmission Date: 20210113
  Serious: No
  Sender: FDA-Public Use
  Company Number: US-SA-2020SA265466

PATIENT

DRUGS (4)
  1. PREDNISONE. [Concomitant]
     Active Substance: PREDNISONE
     Indication: PREMEDICATION
     Dosage: PREDNISONE 20 MG TABLETS 1-2 TABLETS PRIOR TO INFUSION
     Route: 048
  2. ACETAMINOPHEN. [Concomitant]
     Active Substance: ACETAMINOPHEN
     Indication: PREMEDICATION
     Dosage: 650 MG
  3. FABRAZYME [Suspect]
     Active Substance: AGALSIDASE BETA
     Indication: FABRY^S DISEASE
     Dosage: 95 MG, QOW; EVERY 2 WEEKS, 35 MG AND 5 MG VIALS
     Route: 041
     Dates: start: 201807
  4. DIPHENHYDRAMINE. [Concomitant]
     Active Substance: DIPHENHYDRAMINE
     Indication: PREMEDICATION
     Dosage: 50 MG
     Route: 048

REACTIONS (3)
  - Off label use [Unknown]
  - Papule [Unknown]
  - Product storage error [Unknown]

NARRATIVE: CASE EVENT DATE: 20200924
